FAERS Safety Report 7516127-1 (Version None)
Quarter: 2011Q2

REPORT INFORMATION
  Report Type: 
  Country: None (occurrence: None)
  Receive Date: 20110601
  Receipt Date: 20110517
  Transmission Date: 20111010
  Serious: Yes (Other)
  Sender: FDA-Public Use
  Company Number: US-JNJFOC-20110509231

PATIENT
  Age: 13 Month
  Sex: Male
  Weight: 9.07 kg

DRUGS (2)
  1. CHILDREN'S BENADRYL ALLERGY [Suspect]
     Indication: HYPERSENSITIVITY
     Dosage: 1/2 TEASPOON
     Route: 048
     Dates: start: 20110511, end: 20110511
  2. CHILDREN'S BENADRYL ALLERGY [Suspect]
     Route: 048

REACTIONS (4)
  - PRODUCT QUALITY ISSUE [None]
  - HYPERSENSITIVITY [None]
  - OFF LABEL USE [None]
  - WRONG DRUG ADMINISTERED [None]
